FAERS Safety Report 5223613-6 (Version None)
Quarter: 2007Q1

REPORT INFORMATION
  Report Type: 
  Country: None (occurrence: None)
  Receive Date: 20070130
  Receipt Date: 20070126
  Transmission Date: 20070707
  Serious: Yes (Life-Threatening, Hospitalization)
  Sender: FDA-Public Use
  Company Number: US-RB-004923-07

PATIENT
  Sex: Female

DRUGS (5)
  1. SUBOXONE [Suspect]
     Route: 060
     Dates: start: 20050627, end: 20050630
  2. SUBOXONE [Suspect]
     Dosage: PATIENT NOT RETURNED TO REPORTER UNKNOWN DOSE OR IF CONTINUING
     Route: 060
     Dates: start: 20050701, end: 20061201
  3. LEXAPRO [Concomitant]
     Dosage: PATIENT POSSIBLY ON AT PRESENT - BUT WAS ON AT TIME OF AE
     Dates: start: 20050801
  4. WELLBUTRIN [Concomitant]
     Indication: DEPRESSION
     Dosage: PATIENT POSSIBLY STILL ON - BUT ON AT TIME OF AE
     Dates: start: 20051201
  5. KLONOPIN [Concomitant]
     Indication: ANXIETY
     Dosage: PATIENT POSSIBLY TAKING MEDICATION PRESENTLY, BUT WAS TAKING AT TIME OF AE.
     Dates: start: 20050601

REACTIONS (1)
  - MYOCARDIAL INFARCTION [None]
